FAERS Safety Report 14370188 (Version 1)
Quarter: 2018Q1

REPORT INFORMATION
  Report Type: Spontaneous
  Country: ES (occurrence: ES)
  Receive Date: 20180110
  Receipt Date: 20180110
  Transmission Date: 20180509
  Serious: Yes (Life-Threatening)
  Sender: FDA-Public Use
  Company Number: ES-CIPLA LTD.-2017ES31121

PATIENT

DRUGS (6)
  1. ESCITALOPRAM [Suspect]
     Active Substance: ESCITALOPRAM OXALATE
     Dosage: UNK
     Route: 065
     Dates: start: 20120511
  2. OMEPRAZOL CINFAMED 20 MG CAPSULAS DURAS GASTRORESISTENTES EFG , 56 [Concomitant]
     Dosage: UNK
     Route: 065
     Dates: start: 20120212
  3. DEPRAX 100MG COMPRIMIDOS RECUBIERTOS CON PELICULA EFG [Interacting]
     Active Substance: TRAZODONE HYDROCHLORIDE
     Indication: INSOMNIA
     Dosage: 100 MG, UNK
     Route: 065
     Dates: start: 20170629
  4. LORMETAZEPAM CINFA 1MG COMPRIMIDOS EFG, 30 COMPRIMIDOS [Interacting]
     Active Substance: LORMETAZEPAM
     Dosage: UNK
     Route: 065
     Dates: start: 20170626
  5. HALOPERIDOL. [Interacting]
     Active Substance: HALOPERIDOL
     Indication: PRODUCT USED FOR UNKNOWN INDICATION
     Dosage: UNK
     Route: 048
     Dates: start: 20170928
  6. DISTRANEURINE [Interacting]
     Active Substance: CLOMETHIAZOLE
     Dosage: UNK
     Route: 065
     Dates: start: 20170705

REACTIONS (1)
  - Neuroleptic malignant syndrome [Recovering/Resolving]

NARRATIVE: CASE EVENT DATE: 20171211
